FAERS Safety Report 17714363 (Version 6)
Quarter: 2021Q1

REPORT INFORMATION
  Report Type: Report from Study
  Country: US (occurrence: US)
  Receive Date: 20200427
  Receipt Date: 20210114
  Transmission Date: 20210419
  Serious: No
  Sender: FDA-Public Use
  Company Number: NVSC2020US112784

PATIENT
  Age: 41 Year
  Sex: Male

DRUGS (1)
  1. COSENTYX [Suspect]
     Active Substance: SECUKINUMAB
     Indication: PSORIASIS
     Dosage: 300 MG, QMO
     Route: 058

REACTIONS (8)
  - Pain [Recovered/Resolved]
  - SARS-CoV-2 test positive [Unknown]
  - Immune system disorder [Unknown]
  - Pyrexia [Recovered/Resolved]
  - Gastrointestinal disorder [Unknown]
  - Influenza [Unknown]
  - Dyspnoea [Recovered/Resolved]
  - Dyspepsia [Unknown]

NARRATIVE: CASE EVENT DATE: 20200504
